FAERS Safety Report 8510971-X (Version None)
Quarter: 2012Q3

REPORT INFORMATION
  Report Type: 
  Country: None (occurrence: None)
  Receive Date: 20120716
  Receipt Date: 20120712
  Transmission Date: 20120928
  Serious: Yes (Hospitalization)
  Sender: FDA-Public Use
  Company Number: IT-SANOFI-AVENTIS-2012SA044689

PATIENT
  Age: 68 Year
  Sex: Male

DRUGS (9)
  1. ESCITALOPRAM [Concomitant]
     Indication: DEPRESSION
  2. COUMADIN [Concomitant]
  3. LASIX [Suspect]
     Dosage: DOSE REDUCED
     Route: 065
  4. SEACOR [Concomitant]
  5. RAMIPRIL [Suspect]
     Route: 048
     Dates: start: 20030101, end: 20110116
  6. LASIX [Suspect]
     Route: 048
     Dates: start: 20030101, end: 20110116
  7. CARVEDILOL [Suspect]
     Route: 048
     Dates: start: 20030101
  8. LAMOTRIGINE [Concomitant]
  9. ATORVASTATIN CALCIUM [Concomitant]

REACTIONS (1)
  - SYNCOPE [None]
